FAERS Safety Report 9618951 (Version 1)
Quarter: 2013Q4

REPORT INFORMATION
  Report Type: Spontaneous
  Country: US (occurrence: US)
  Receive Date: 20131014
  Receipt Date: 20131014
  Transmission Date: 20140711
  Serious: Yes (Other)
  Sender: FDA-Public Use
  Company Number: US-PFIZER INC-2013292079

PATIENT
  Age: 65 Year
  Sex: Male
  Weight: 96.15 kg

DRUGS (2)
  1. CELEBREX [Suspect]
     Indication: ARTHRITIS
     Dosage: 200 MG, 2X/DAY
     Dates: end: 2013
  2. LISINOPRIL [Concomitant]
     Indication: HYPERTENSION
     Dosage: 40 MG, 1X/DAY

REACTIONS (2)
  - Arthropathy [Unknown]
  - Renal mass [Recovered/Resolved]
